FAERS Safety Report 17518010 (Version 2)
Quarter: 2020Q2

REPORT INFORMATION
  Report Type: Report from Study
  Country: US (occurrence: US)
  Receive Date: 20200309
  Receipt Date: 20200406
  Transmission Date: 20200713
  Serious: Yes (Death, Hospitalization)
  Sender: FDA-Public Use
  Company Number: US-ACTELION-A-NJ2020-200106

PATIENT
  Age: 57 Year
  Sex: Female

DRUGS (13)
  1. ASPIRIN. [Concomitant]
     Active Substance: ASPIRIN
  2. SILDENAFIL. [Concomitant]
     Active Substance: SILDENAFIL
  3. MYCOPHENOLATE [Concomitant]
     Active Substance: MYCOPHENOLIC ACID
  4. HUMALIN [Concomitant]
     Active Substance: INSULIN NOS
  5. LEVOTHYROXINE. [Concomitant]
     Active Substance: LEVOTHYROXINE
  6. REMODULIN [Concomitant]
     Active Substance: TREPROSTINIL
  7. OMEPRAZOLE. [Concomitant]
     Active Substance: OMEPRAZOLE
  8. LISINOPRIL. [Concomitant]
     Active Substance: LISINOPRIL
  9. FERROUS SULFATE. [Concomitant]
     Active Substance: FERROUS SULFATE
  10. DIGOXIN. [Concomitant]
     Active Substance: DIGOXIN
  11. ATORVASTATIN [Concomitant]
     Active Substance: ATORVASTATIN
  12. OPSUMIT [Suspect]
     Active Substance: MACITENTAN
     Indication: PULMONARY ARTERIAL HYPERTENSION
     Dosage: 10 MG, QD
     Route: 048
     Dates: start: 20191120, end: 202003
  13. PROCRIT [Concomitant]
     Active Substance: ERYTHROPOIETIN

REACTIONS (19)
  - Enterovirus infection [Recovering/Resolving]
  - Orthopnoea [Unknown]
  - Blister [Unknown]
  - Herpes zoster [Unknown]
  - Respiratory distress [Not Recovered/Not Resolved]
  - Rash macular [Unknown]
  - Pain [Unknown]
  - Abdominal pain [Unknown]
  - Death [Fatal]
  - Fatigue [Unknown]
  - Dyspnoea [Recovering/Resolving]
  - Oedema peripheral [Unknown]
  - Drug hypersensitivity [Unknown]
  - Acute respiratory failure [Recovering/Resolving]
  - Rhinovirus infection [Recovering/Resolving]
  - Pleural effusion [Unknown]
  - Fluid overload [Recovering/Resolving]
  - Rash [Unknown]
  - Chest pain [Unknown]

NARRATIVE: CASE EVENT DATE: 20200213
